FAERS Safety Report 10067688 (Version 2)
Quarter: 2014Q2

REPORT INFORMATION
  Report Type: Spontaneous
  Country: US (occurrence: None)
  Receive Date: 20140407
  Receipt Date: 20140623
  Transmission Date: 20141212
  Serious: Yes (Hospitalization, Other)
  Sender: FDA-Public Use
  Company Number: UTC-046662

PATIENT
  Age: 68 Year
  Sex: Female

DRUGS (2)
  1. TYVASO [Suspect]
     Indication: PULMONARY ARTERIAL HYPERTENSION
     Dosage: (18 MCG)
     Route: 055
     Dates: start: 20130322, end: 201403
  2. LETAIRIS (AMBRISENTAN) (TABLETS) [Concomitant]

REACTIONS (6)
  - Drug ineffective [None]
  - Dyspnoea [None]
  - Condition aggravated [None]
  - Respiratory failure [None]
  - Pneumothorax [None]
  - Post procedural complication [None]
